FAERS Safety Report 23796973 (Version 1)
Quarter: 2024Q2

REPORT INFORMATION
  Report Type: Spontaneous
  Country: RO (occurrence: RO)
  Receive Date: 20240430
  Receipt Date: 20240430
  Transmission Date: 20240716
  Serious: Yes (Other)
  Sender: FDA-Public Use
  Company Number: RO-BRISTOL-MYERS SQUIBB COMPANY-2024-065307

PATIENT
  Age: 63 Year
  Sex: Male

DRUGS (4)
  1. NIVOLUMAB [Suspect]
     Active Substance: NIVOLUMAB
     Indication: Lung adenocarcinoma
     Dosage: AUG 2023-DEC 2023- 6 COURSES OF COMBINED THERAPY?FEB 2024-APRIL 2024-CONTINUE TREATMENT
     Dates: start: 202308
  2. IPILIMUMAB [Suspect]
     Active Substance: IPILIMUMAB
     Indication: Lung adenocarcinoma
     Dosage: AUG 2023-DEC 2023- 6 COURSES OF COMBINED THERAPY?FEB 2024-APRIL 2024-CONTINUE TREATMENT
     Dates: start: 202308
  3. CARBOPLATIN [Concomitant]
     Active Substance: CARBOPLATIN
     Indication: Lung adenocarcinoma
     Dosage: AUG 2023-DEC 2023- 6 COURSES OF COMBINED THERAPY?FEB 2024-APRIL 2024-CONTINUE TREATMENT
     Dates: start: 202308
  4. PEMETREXED DISODIUM [Concomitant]
     Active Substance: PEMETREXED DISODIUM
     Indication: Lung adenocarcinoma
     Dosage: AUG 2023-DEC 2023- 6 COURSES OF COMBINED THERAPY?FEB 2024-APRIL 2024-CONTINUE TREATMENT
     Dates: start: 202308

REACTIONS (1)
  - Hepatic lesion [Unknown]

NARRATIVE: CASE EVENT DATE: 20240101
